FAERS Safety Report 7378931-2 (Version None)
Quarter: 2011Q1

REPORT INFORMATION
  Report Type: 
  Country: None (occurrence: None)
  Receive Date: 20110328
  Receipt Date: 20110315
  Transmission Date: 20110831
  Serious: Yes (Other)
  Sender: FDA-Public Use
  Company Number: PHHY2011DE21822

PATIENT

DRUGS (3)
  1. DIAZEPAM [Suspect]
  2. LORAZEPAM [Suspect]
  3. OXAZEPAM [Suspect]

REACTIONS (2)
  - HYPERAESTHESIA [None]
  - DRUG WITHDRAWAL SYNDROME [None]
